FAERS Safety Report 17841828 (Version 1)
Quarter: 2020Q2

REPORT INFORMATION
  Report Type: Spontaneous
  Country: GB (occurrence: GB)
  Receive Date: 20200529
  Receipt Date: 20200529
  Transmission Date: 20200714
  Serious: Yes (Other)
  Sender: FDA-Public Use
  Company Number: GB-ANIPHARMA-2020-UK-000115

PATIENT
  Age: 51 Year
  Sex: Female
  Weight: 72 kg

DRUGS (5)
  1. CANDESARTAN CILEXETIL. [Suspect]
     Active Substance: CANDESARTAN CILEXETIL
     Indication: PRODUCT USED FOR UNKNOWN INDICATION
     Dosage: 4 MG UNK
     Route: 048
     Dates: start: 20200504
  2. FLUCLOXACILLIN [Concomitant]
     Active Substance: FLUCLOXACILLIN
     Dosage: EVERY DAY
     Route: 065
     Dates: start: 20200430
  3. OMEPRAZOLE. [Concomitant]
     Active Substance: OMEPRAZOLE
     Dosage: UNKNOWN
     Route: 065
     Dates: start: 20190801
  4. DILTIAZEM. [Concomitant]
     Active Substance: DILTIAZEM
     Dosage: EVERY DAY
     Route: 065
     Dates: start: 20190801
  5. SANDO K [Concomitant]
     Dosage: EVERY DAY
     Route: 065
     Dates: start: 20190801

REACTIONS (2)
  - Pain in extremity [Unknown]
  - Myalgia [Unknown]
